FAERS Safety Report 17140069 (Version 2)
Quarter: 2019Q4

REPORT INFORMATION
  Report Type: Spontaneous
  Country: CA (occurrence: CA)
  Receive Date: 20191211
  Receipt Date: 20191227
  Transmission Date: 20200122
  Serious: Yes (Life-Threatening, Hospitalization, Other)
  Sender: FDA-Public Use
  Company Number: CA-AUROBINDO-AUR-APL-2015-10370

PATIENT
  Age: 62 Year
  Sex: Male

DRUGS (21)
  1. QUETIAPINE FILM-COATED TABLET [Interacting]
     Active Substance: QUETIAPINE
     Indication: AGITATION
     Dosage: 200 MILLIGRAM, FOUR TIMES/DAY
     Route: 065
  2. HALOPERIDOL. [Interacting]
     Active Substance: HALOPERIDOL
     Dosage: 4 MILLIGRAM
     Route: 065
  3. PRAMIPEXOLE. [Concomitant]
     Active Substance: PRAMIPEXOLE
     Indication: RESTLESS LEGS SYNDROME
     Dosage: 0.5 MILLIGRAM, ONCE A DAY
     Route: 065
  4. METOCLOPRAMIDE. [Interacting]
     Active Substance: METOCLOPRAMIDE
     Indication: MALABSORPTION
     Dosage: 50 MILLIGRAM, FOUR TIMES/DAY
     Route: 065
  5. HALOPERIDOL. [Interacting]
     Active Substance: HALOPERIDOL
     Indication: AGITATION
     Dosage: 1 MILLIGRAM, ONCE A DAY
     Route: 065
  6. MIDAZOLAM [Concomitant]
     Active Substance: MIDAZOLAM HYDROCHLORIDE
     Indication: CLONUS
     Dosage: 6.5 MILLIGRAM
     Route: 065
  7. PHENYTOIN. [Concomitant]
     Active Substance: PHENYTOIN
     Indication: DEPRESSED LEVEL OF CONSCIOUSNESS
     Dosage: UNK
     Route: 065
  8. METOCLOPRAMIDE. [Interacting]
     Active Substance: METOCLOPRAMIDE
     Indication: MALABSORPTION
  9. PROPOFOL. [Concomitant]
     Active Substance: PROPOFOL
     Indication: ANAESTHESIA
  10. HALOPERIDOL. [Interacting]
     Active Substance: HALOPERIDOL
     Indication: AGGRESSION
     Dosage: 3 MILLIGRAM
     Route: 065
  11. MIDAZOLAM [Suspect]
     Active Substance: MIDAZOLAM HYDROCHLORIDE
     Indication: CLONUS
     Dosage: 6.5 MILLIGRAM
     Route: 065
  12. MIDAZOLAM [Concomitant]
     Active Substance: MIDAZOLAM HYDROCHLORIDE
     Indication: STATUS EPILEPTICUS
  13. LORAZEPAM. [Concomitant]
     Active Substance: LORAZEPAM
     Indication: STATUS EPILEPTICUS
     Dosage: 4 MILLIGRAM
     Route: 065
  14. PROPOFOL. [Concomitant]
     Active Substance: PROPOFOL
     Indication: DEPRESSED LEVEL OF CONSCIOUSNESS
     Dosage: UNK
     Route: 065
  15. METOCLOPRAMIDE. [Interacting]
     Active Substance: METOCLOPRAMIDE
     Indication: AGITATION
  16. LORAZEPAM. [Suspect]
     Active Substance: LORAZEPAM
     Indication: CLONUS
     Dosage: 5.0 MILLIGRAM
     Route: 065
  17. PRAMIPEXOLE. [Concomitant]
     Active Substance: PRAMIPEXOLE
     Indication: CEREBRAL ARTERY OCCLUSION
  18. TISSUE PLASMINOGEN ACTIVATOR, RECOMBINATIVE [Concomitant]
     Active Substance: ALTEPLASE
     Indication: PRODUCT USED FOR UNKNOWN INDICATION
     Dosage: UNK
     Route: 065
  19. MIDAZOLAM [Suspect]
     Active Substance: MIDAZOLAM HYDROCHLORIDE
     Dosage: 8.0 MILLIGRAM
     Route: 065
  20. QUETIAPINE FILM-COATED TABLET [Suspect]
     Active Substance: QUETIAPINE
     Indication: DELIRIUM
     Dosage: 50 MILLIGRAM, FOUR TIMES/DAY
     Route: 065
  21. METOCLOPRAMIDE. [Interacting]
     Active Substance: METOCLOPRAMIDE
     Indication: GASTRIC DISORDER
     Dosage: 200 MILLIGRAM, FOUR TIMES/DAY
     Route: 065

REACTIONS (7)
  - Status epilepticus [Recovering/Resolving]
  - Drug ineffective [Unknown]
  - Potentiating drug interaction [Recovering/Resolving]
  - Drug interaction [Recovered/Resolved]
  - Dystonia [Recovered/Resolved]
  - Depressed level of consciousness [Unknown]
  - Endotracheal intubation [Unknown]
